FAERS Safety Report 4451518-7 (Version None)
Quarter: 2004Q3

REPORT INFORMATION
  Report Type: 
  Country: None (occurrence: None)
  Receive Date: 20040915
  Receipt Date: 20040901
  Transmission Date: 20050211
  Serious: Yes (Hospitalization, Other)
  Sender: FDA-Public Use
  Company Number: 2004231226US

PATIENT
  Age: 88 Year
  Sex: Female

DRUGS (10)
  1. CELEBREX [Suspect]
     Dosage: 200 MG, QD, ORAL
     Route: 048
     Dates: start: 20020101, end: 20020101
  2. NITROGLCYERIN ^SLOVAKOFARMA^ [Concomitant]
  3. METOPROLOL [Concomitant]
  4. PLAVIX [Concomitant]
  5. ENALAPRIL MALEATE [Concomitant]
  6. LASIX [Concomitant]
  7. ACTONEL [Concomitant]
  8. OXYCONTIN [Concomitant]
  9. PREVACID [Concomitant]
  10. ALTACE [Concomitant]

REACTIONS (2)
  - ACUTE MYOCARDIAL INFARCTION [None]
  - ATRIAL FIBRILLATION [None]
